FAERS Safety Report 5532156-1 (Version None)
Quarter: 2007Q4

REPORT INFORMATION
  Report Type: 
  Country: None (occurrence: None)
  Receive Date: 20071203
  Receipt Date: 20071119
  Transmission Date: 20080405
  Serious: Yes (Hospitalization, Disabling, Other)
  Sender: FDA-Public Use
  Company Number: GB-RANBAXY-2007RR-11604

PATIENT

DRUGS (5)
  1. SIMVASTATIN [Suspect]
     Indication: HYPERCHOLESTEROLAEMIA
     Dosage: 40 MG, UNK
     Route: 048
     Dates: start: 20041108, end: 20071004
  2. SIMVASTATIN [Suspect]
     Indication: HYPERLIPIDAEMIA
  3. ACETAMINOPHEN [Concomitant]
     Indication: OSTEOARTHRITIS
     Dosage: UNK
     Dates: start: 19981217
  4. ATENOLOL TABLETS BP 50MG [Concomitant]
     Indication: HYPERTENSION
     Dosage: 50 MG, UNK
     Dates: start: 20011008
  5. FLUOXETINE [Concomitant]
     Indication: DEPRESSION
     Dosage: 20 MG, UNK
     Dates: start: 20040808

REACTIONS (2)
  - JOINT DISLOCATION POSTOPERATIVE [None]
  - LOSS OF CONSCIOUSNESS [None]
